FAERS Safety Report 11102161 (Version 3)
Quarter: 2017Q2

REPORT INFORMATION
  Report Type: Report from Study
  Country: CO (occurrence: CO)
  Receive Date: 20150511
  Receipt Date: 20170524
  Transmission Date: 20170829
  Serious: Yes (Hospitalization)
  Sender: FDA-Public Use
  Company Number: CO-ROCHE-1575318

PATIENT
  Sex: Female
  Weight: 75 kg

DRUGS (2)
  1. XOLAIR [Suspect]
     Active Substance: OMALIZUMAB
     Indication: BLOOD IMMUNOGLOBULIN E INCREASED
     Dosage: 2 AMPOULES,
     Route: 058
     Dates: start: 20151203
  2. XOLAIR [Suspect]
     Active Substance: OMALIZUMAB
     Indication: ASTHMA
     Dosage: 2 AMPOULES, EVERY 15 DAYS
     Route: 058
     Dates: start: 2013

REACTIONS (1)
  - Asthmatic crisis [Unknown]
